FAERS Safety Report 4387858-X (Version None)
Quarter: 2004Q2

REPORT INFORMATION
  Report Type: 
  Country: None (occurrence: None)
  Receive Date: 20040630
  Receipt Date: 20040614
  Transmission Date: 20050107
  Serious: Yes (Hospitalization, Other)
  Sender: FDA-Public Use
  Company Number: PHBS2004SE07831

PATIENT
  Age: 55 Year
  Sex: Female

DRUGS (9)
  1. TEGRETOL [Suspect]
     Route: 048
  2. EFFEXOR [Suspect]
     Dosage: 75 MG, UNK
  3. RISPERIDONE [Suspect]
     Dosage: .5 MG, UNK
  4. ALVEDON [Concomitant]
  5. MOVICOL [Concomitant]
  6. PROPAVAN [Concomitant]
     Dosage: 25 MG, UNK
  7. STESOLID [Concomitant]
     Dosage: 5 MG, UNK
  8. SODIUM CHLORIDE INJ [Concomitant]
     Dosage: 500 MG, UNK
  9. XANOR [Concomitant]
     Dosage: .25 MG, UNK

REACTIONS (17)
  - ABDOMINAL PAIN [None]
  - BLOOD ALKALINE PHOSPHATASE INCREASED [None]
  - BLOOD POTASSIUM DECREASED [None]
  - BLOOD SODIUM DECREASED [None]
  - BRAIN OEDEMA [None]
  - BRUXISM [None]
  - CEREBRAL ATROPHY [None]
  - COMMUNICATION DISORDER [None]
  - CONVULSION [None]
  - DEPRESSED LEVEL OF CONSCIOUSNESS [None]
  - DIARRHOEA [None]
  - FALL [None]
  - HEAD INJURY [None]
  - HYPOKALAEMIA [None]
  - HYPONATRAEMIA [None]
  - MUSCLE CRAMP [None]
  - MUSCULOSKELETAL STIFFNESS [None]
